FAERS Safety Report 6747201-5 (Version None)
Quarter: 2010Q2

REPORT INFORMATION
  Report Type: 
  Country: None (occurrence: None)
  Receive Date: 20100528
  Receipt Date: 20100519
  Transmission Date: 20101027
  Serious: Yes (Other)
  Sender: FDA-Public Use
  Company Number: US-PFIZER INC-2008041905

PATIENT
  Sex: Female
  Weight: 78 kg

DRUGS (15)
  1. PACLITAXEL [Suspect]
     Indication: BREAST CANCER
     Dosage: 148 MG, WEEKLY
     Route: 042
     Dates: start: 20080313, end: 20080320
  2. PACLITAXEL [Suspect]
     Dosage: 125 MG, WEEKLY
     Route: 042
     Dates: start: 20080402, end: 20080402
  3. PACLITAXEL [Suspect]
     Dosage: 150 MG, WEEKLY 3 OF 4
     Route: 042
     Dates: start: 20080417, end: 20080430
  4. SUNITINIB MALATE [Suspect]
     Indication: BREAST CANCER
     Dosage: 12.5 MG, 2X/DAY
     Route: 048
     Dates: start: 20080313, end: 20080327
  5. SUNITINIB MALATE [Suspect]
     Dosage: 12.5 MG, 1X/DAY
     Dates: start: 20080417, end: 20080505
  6. EFFEXOR [Concomitant]
     Route: 048
     Dates: start: 20040101
  7. AMBIEN [Concomitant]
     Route: 048
     Dates: start: 20030701
  8. TRAMADOL [Concomitant]
     Route: 048
     Dates: start: 20080201
  9. COMPAZINE [Concomitant]
     Route: 054
     Dates: start: 20080313
  10. LORAZEPAM [Concomitant]
     Route: 048
     Dates: start: 20030701
  11. IBUPROFEN [Concomitant]
     Route: 048
     Dates: start: 20030101
  12. FENTANYL [Concomitant]
     Route: 061
     Dates: start: 20080301
  13. DECADRON [Concomitant]
     Route: 048
     Dates: start: 20080312
  14. FLEXERIL [Concomitant]
     Route: 048
     Dates: start: 20070701
  15. ZOMETA [Concomitant]
     Route: 042
     Dates: start: 20080214

REACTIONS (1)
  - CHOLECYSTITIS [None]
